FAERS Safety Report 25994018 (Version 1)
Quarter: 2025Q4

REPORT INFORMATION
  Report Type: Spontaneous
  Country: EU (occurrence: EU)
  Receive Date: 20251104
  Receipt Date: 20251104
  Transmission Date: 20260117
  Serious: Yes (Other)
  Sender: DR REDDYS
  Company Number: None

PATIENT
  Age: 40 Year
  Sex: Female

DRUGS (2)
  1. FULVESTRANT [Suspect]
     Active Substance: FULVESTRANT
     Indication: Breast cancer
     Dosage: 1 DOSAGE FORM
     Route: 058
  2. RIBOCICLIB [Suspect]
     Active Substance: RIBOCICLIB
     Indication: Breast cancer
     Dosage: 600 MG, QD (34TH COURSE AT A INITIAL DOSE)
     Route: 065

REACTIONS (5)
  - Metastases to lung [Recovering/Resolving]
  - Metastases to bone [Recovering/Resolving]
  - Neutropenia [Unknown]
  - Pleural effusion [Recovering/Resolving]
  - Pleural thickening [Recovering/Resolving]
